FAERS Safety Report 4558531-X (Version None)
Quarter: 2005Q1

REPORT INFORMATION
  Report Type: 
  Country: None (occurrence: None)
  Receive Date: 20050121
  Receipt Date: 20050111
  Transmission Date: 20050727
  Serious: Yes (Hospitalization)
  Sender: FDA-Public Use
  Company Number: JP-JNJFOC-20040905757

PATIENT
  Sex: Male

DRUGS (3)
  1. ITRIZOLE [Suspect]
     Route: 049
     Dates: start: 20040703, end: 20040922
  2. ITRIZOLE [Suspect]
     Route: 049
     Dates: start: 20040703, end: 20040922
  3. ITRIZOLE [Suspect]
     Indication: ONYCHOMYCOSIS
     Route: 049
     Dates: start: 20040703, end: 20040922

REACTIONS (1)
  - ERYTHEMA MULTIFORME [None]
